FAERS Safety Report 4466635-5 (Version None)
Quarter: 2004Q4

REPORT INFORMATION
  Report Type: 
  Country: None (occurrence: None)
  Receive Date: 20041001
  Receipt Date: 20041001
  Transmission Date: 20050328
  Serious: Yes (Life-Threatening, Hospitalization, Disabling)
  Sender: FDA-Public Use
  Company Number: None

PATIENT

DRUGS (2)
  1. VIOXX [Suspect]
     Indication: ARTHRITIS
     Dosage: ONE 25 MG TABLET ORAL
     Route: 048
     Dates: start: 19981015, end: 20040930
  2. VIOXX [Suspect]
     Indication: INTERVERTEBRAL DISC DEGENERATION
     Dosage: ONE 25 MG TABLET ORAL
     Route: 048
     Dates: start: 19981015, end: 20040930

REACTIONS (1)
  - MYOCARDIAL INFARCTION [None]
